FAERS Safety Report 14053701 (Version 2)
Quarter: 2017Q4

REPORT INFORMATION
  Report Type: Spontaneous
  Country: DE (occurrence: DE)
  Receive Date: 20171006
  Receipt Date: 20171026
  Transmission Date: 20180321
  Serious: Yes (Hospitalization, Other)
  Sender: FDA-Public Use
  Company Number: DE-AMGEN-DEUSP2017150435

PATIENT
  Age: 71 Year
  Sex: Female
  Weight: 49 kg

DRUGS (7)
  1. ENBREL [Suspect]
     Active Substance: ETANERCEPT
     Indication: PRODUCT USED FOR UNKNOWN INDICATION
     Dosage: UNK
     Route: 065
  2. SPIRONOLACTONE. [Concomitant]
     Active Substance: SPIRONOLACTONE
     Dosage: 0.5 DF ONCE A DAY IN THE MORNING (0.5 -0-0-0)
  3. VALSARTAN. [Concomitant]
     Active Substance: VALSARTAN
     Dosage: 0.5 DF ONCE A DAY IN THE MORNING (0.5 -0-0-0)
  4. XARELTO [Concomitant]
     Active Substance: RIVAROXABAN
     Indication: ANTICOAGULANT THERAPY
     Dosage: 1 DF ONCE A DAY IN THE MORNING (1-0-0-0)
     Route: 048
  5. TOREM [Concomitant]
     Active Substance: TORSEMIDE
     Dosage: 0.5 DF ONCE A DAY IN THE MORNING (0.5 -0-0-0)
  6. BISOPROLOL [Concomitant]
     Active Substance: BISOPROLOL
     Dosage: 1 DF ONCE A DAY (0-1-0-0)
  7. ATORVASTATIN [Concomitant]
     Active Substance: ATORVASTATIN
     Dosage: 1 DF ONCE A DAY (0-0-1-0)

REACTIONS (1)
  - Congestive cardiomyopathy [Unknown]

NARRATIVE: CASE EVENT DATE: 201701
